FAERS Safety Report 25361791 (Version 1)
Quarter: 2025Q2

REPORT INFORMATION
  Report Type: Report from Study
  Country: BR (occurrence: BR)
  Receive Date: 20250527
  Receipt Date: 20250527
  Transmission Date: 20250716
  Serious: Yes (Other)
  Sender: TAKEDA
  Company Number: BR-TAKEDA-2019TUS060585

PATIENT
  Age: 25 Year
  Sex: Female

DRUGS (5)
  1. VEDOLIZUMAB [Suspect]
     Active Substance: VEDOLIZUMAB
     Indication: Colitis ulcerative
  2. VEDOLIZUMAB [Suspect]
     Active Substance: VEDOLIZUMAB
     Indication: Crohn^s disease
     Dosage: 300 MILLIGRAM, Q4WEEKS
     Dates: end: 2022
  3. PREGABALIN [Concomitant]
     Active Substance: PREGABALIN
     Indication: Anxiety
  4. PREGABALIN [Concomitant]
     Active Substance: PREGABALIN
     Indication: Back pain
  5. HUMIRA [Concomitant]
     Active Substance: ADALIMUMAB

REACTIONS (12)
  - Colitis ulcerative [Recovered/Resolved]
  - Crohn^s disease [Unknown]
  - Anal abscess [Recovered/Resolved]
  - Menstruation irregular [Recovered/Resolved]
  - Diarrhoea [Recovered/Resolved]
  - Pregnancy [Recovered/Resolved]
  - Drug level decreased [Unknown]
  - Gastrointestinal disorder [Recovered/Resolved]
  - Anal fissure [Not Recovered/Not Resolved]
  - Maternal exposure during breast feeding [Unknown]
  - Anal fistula [Recovered/Resolved]
  - Varicose vein [Unknown]

NARRATIVE: CASE EVENT DATE: 20190806
